FAERS Safety Report 6818660-4 (Version None)
Quarter: 2010Q3

REPORT INFORMATION
  Report Type: 
  Country: None (occurrence: None)
  Receive Date: 20100706
  Receipt Date: 20081105
  Transmission Date: 20110219
  Serious: No
  Sender: FDA-Public Use
  Company Number: US-PFIZER INC-2008094983

PATIENT
  Sex: Female
  Weight: 62.6 kg

DRUGS (3)
  1. ZITHROMAX [Suspect]
     Indication: EAR INFECTION
     Dates: start: 20070101
  2. RISPERDAL [Concomitant]
  3. ATIVAN [Concomitant]

REACTIONS (2)
  - DIZZINESS [None]
  - HEART RATE INCREASED [None]
